FAERS Safety Report 6887536-9 (Version None)
Quarter: 2010Q3

REPORT INFORMATION
  Report Type: 
  Country: None (occurrence: None)
  Receive Date: 20100730
  Receipt Date: 20100715
  Transmission Date: 20110219
  Serious: No
  Sender: FDA-Public Use
  Company Number: B0626821A

PATIENT
  Sex: Female
  Weight: 58 kg

DRUGS (10)
  1. RELENZA [Suspect]
     Indication: INFLUENZA
     Dosage: 20MG PER DAY
     Route: 055
     Dates: start: 20100107, end: 20100111
  2. CHINESE MEDICINE [Concomitant]
     Indication: HYPEREMESIS GRAVIDARUM
     Dosage: 3IUAX PER DAY
     Route: 048
     Dates: start: 20091003, end: 20091021
  3. LAXOBERON [Concomitant]
     Indication: CONSTIPATION
     Dates: start: 20091229
  4. CALONAL [Concomitant]
     Indication: ANTIPYRESIS
     Dosage: 6IUAX PER DAY
     Dates: start: 20100107, end: 20100112
  5. CEFZON [Concomitant]
     Indication: BRONCHITIS
     Dosage: 3IUAX PER DAY
     Dates: start: 20100107, end: 20100112
  6. SELBEX [Concomitant]
     Indication: BRONCHITIS
     Dosage: 3IUAX PER DAY
     Dates: start: 20100107, end: 20100112
  7. TRANEXAMIC ACID [Concomitant]
     Indication: BRONCHITIS
     Dosage: 6IUAX PER DAY
     Dates: start: 20100107, end: 20100112
  8. FERRUM [Concomitant]
     Dosage: 1IUAX PER DAY
     Dates: start: 20100320, end: 20100501
  9. GASLON N [Concomitant]
     Dosage: 1IUAX PER DAY
     Dates: start: 20100320, end: 20100501
  10. INFLUENZA HA VACCINE [Concomitant]
     Indication: ANTIVIRAL PROPHYLAXIS
     Route: 030
     Dates: start: 20091110, end: 20091110

REACTIONS (2)
  - DELIVERY [None]
  - DRUG EXPOSURE DURING PREGNANCY [None]
